FAERS Safety Report 8925448 (Version 1)
Quarter: 2012Q4

REPORT INFORMATION
  Report Type: 
  Country: FR (occurrence: FR)
  Receive Date: 20121126
  Receipt Date: 20121126
  Transmission Date: 20130627
  Serious: Yes (Hospitalization)
  Sender: FDA-Public Use
  Company Number: FR-VERTEX PHARMACEUTICAL INC.-2012-025118

PATIENT
  Age: 37 Year
  Sex: Male
  Weight: 140 kg

DRUGS (11)
  1. INCIVO [Suspect]
     Indication: HEPATITIS C
     Dosage: Dosage Form: Tablet
     Route: 048
     Dates: start: 20120112, end: 20120405
  2. RIBAVIRIN [Suspect]
     Indication: HEPATITIS C
     Dosage: 2000 mg, qd
     Route: 048
     Dates: start: 20120223
  3. RIBAVIRIN [Suspect]
     Dosage: 2400 mg, qd
     Route: 048
     Dates: start: 20120112, end: 20120223
  4. PEGASYS [Suspect]
     Indication: HEPATITIS C
     Dosage: 180 ?g, qw
     Dates: start: 20120112
  5. CYMBALTA [Concomitant]
     Indication: DEPRESSION
     Dosage: 120 mg, qd
  6. ABILIFY [Concomitant]
     Indication: DEPRESSION
     Dosage: 5 mg, qd
  7. ATARAX [Concomitant]
     Indication: DEPRESSION
     Dosage: 100 mg, qd
  8. STILNOX [Concomitant]
     Indication: DEPRESSION
     Dosage: UNK, bid
  9. PARACETAMOL [Concomitant]
     Indication: PROPHYLAXIS
     Dosage: 500 mg, UNK
  10. SEROQUEL [Concomitant]
     Indication: BIPOLAR DISORDER
     Dosage: UNK
     Dates: start: 20120402
  11. ERYTHROPOIETIN [Concomitant]
     Indication: ANAEMIA
     Dosage: 30000 IU, qw
     Dates: start: 20120402

REACTIONS (1)
  - Depression [Recovered/Resolved]
